FAERS Safety Report 24542481 (Version 1)
Quarter: 2024Q4

REPORT INFORMATION
  Report Type: Report from Study
  Country: US (occurrence: US)
  Receive Date: 20241024
  Receipt Date: 20241024
  Transmission Date: 20250115
  Serious: Yes (Hospitalization)
  Sender: ABBVIE
  Company Number: US-ABBVIE-5972231

PATIENT
  Age: 52 Year
  Sex: Female

DRUGS (1)
  1. RINVOQ [Suspect]
     Active Substance: UPADACITINIB
     Indication: Crohn^s disease
     Route: 048
     Dates: start: 20240606

REACTIONS (2)
  - Intervertebral disc protrusion [Recovering/Resolving]
  - Speech disorder developmental [Not Recovered/Not Resolved]

NARRATIVE: CASE EVENT DATE: 20240901
